FAERS Safety Report 21787882 (Version 2)
Quarter: 2025Q1

REPORT INFORMATION
  Report Type: Spontaneous
  Country: US (occurrence: US)
  Receive Date: 20221228
  Receipt Date: 20250115
  Transmission Date: 20250409
  Serious: No
  Sender: SANOFI AVENTIS
  Company Number: US-SA-SAC20221226000358

PATIENT
  Age: 43 Year
  Sex: Male
  Weight: 88.64 kg

DRUGS (1)
  1. CERDELGA [Suspect]
     Active Substance: ELIGLUSTAT
     Indication: Gaucher^s disease
     Dosage: 84 MG, BID
     Route: 048
     Dates: start: 202003

REACTIONS (2)
  - Weight decreased [Unknown]
  - Weight increased [Unknown]
